FAERS Safety Report 20338880 (Version 1)
Quarter: 2022Q1

REPORT INFORMATION
  Report Type: Spontaneous
  Country: CO (occurrence: CO)
  Receive Date: 20220116
  Receipt Date: 20220116
  Transmission Date: 20220423
  Serious: Yes (Other)
  Sender: FDA-Public Use
  Company Number: CO-PFIZER INC-202200018249

PATIENT
  Age: 69 Year
  Sex: Male

DRUGS (1)
  1. ENBREL [Suspect]
     Active Substance: ETANERCEPT
     Indication: Rheumatoid arthritis
     Dosage: 50 MG, UNSPECIFIED FREQUENCY
     Route: 058
     Dates: start: 2018

REACTIONS (1)
  - Prostatic operation [Recovering/Resolving]

NARRATIVE: CASE EVENT DATE: 20211216
